FAERS Safety Report 15452915 (Version 10)
Quarter: 2021Q4

REPORT INFORMATION
  Report Type: Spontaneous
  Country: US (occurrence: US)
  Receive Date: 20181001
  Receipt Date: 20211015
  Transmission Date: 20220303
  Serious: No
  Sender: FDA-Public Use
  Company Number: US-PFIZER INC-2018390617

PATIENT
  Age: 58 Year
  Sex: Female
  Weight: 75.3 kg

DRUGS (10)
  1. LYRICA [Suspect]
     Active Substance: PREGABALIN
     Indication: Neuropathy peripheral
     Dosage: 600 MG, 3X/DAY
     Route: 048
     Dates: start: 201703
  2. LYRICA [Suspect]
     Active Substance: PREGABALIN
     Indication: Anxiety
     Dosage: 450 MG, 3X/DAY
     Route: 048
  3. LYRICA [Suspect]
     Active Substance: PREGABALIN
     Dosage: 1050 MG, DAILY (350 MG CAPSULES IN THE MORNING, AFTERNOON AND NIGHT)
     Route: 048
  4. LYRICA [Suspect]
     Active Substance: PREGABALIN
     Dosage: 1150 MG, DAILY (450 MG CAPSULES IN THE MORNING, 350 MG CAPSULES AFTERNOON, 350 MG CAPSULE NIGHT)
     Route: 048
     Dates: start: 20180923
  5. LYRICA [Suspect]
     Active Substance: PREGABALIN
     Dosage: 500 MG, DAILY (LYRICA 200 MG AT BREAKFAST, 150 MG AT 3 PM, AND 150 MG BEDTIME)
     Route: 048
  6. LYRICA [Suspect]
     Active Substance: PREGABALIN
     Dosage: 550 MG, DAILY(4Q(EVERY)AM, 3Q(EVERY) NOON, 4QHS(EVERY NIGHT AT BEDTIME)
  7. LYRICA [Suspect]
     Active Substance: PREGABALIN
     Dosage: 200 MG, 3X/DAY (4 Q AM (AT MORNING) 4 Q AFTERNOON 4 QHS (BEFORE BED)
  8. LYRICA [Suspect]
     Active Substance: PREGABALIN
     Dosage: 400 MG (6 EVERY AM 4 EVERY AFTERNOON 6 EVERY NIGHT AT BEDTIME)
  9. AMITRIPTYLINE [Concomitant]
     Active Substance: AMITRIPTYLINE
     Dosage: UNK
  10. AMITRIPTYLINE [Concomitant]
     Active Substance: AMITRIPTYLINE
     Dosage: UNK (DECREASED BY 10 MG)
     Dates: start: 201703

REACTIONS (7)
  - Drug ineffective [Unknown]
  - Prescribed overdose [Unknown]
  - Tinnitus [Not Recovered/Not Resolved]
  - Feeling abnormal [Not Recovered/Not Resolved]
  - Weight decreased [Unknown]
  - Dry mouth [Not Recovered/Not Resolved]
  - Condition aggravated [Not Recovered/Not Resolved]

NARRATIVE: CASE EVENT DATE: 20170301
